FAERS Safety Report 7335380-0 (Version None)
Quarter: 2011Q1

REPORT INFORMATION
  Report Type: 
  Country: None (occurrence: None)
  Receive Date: 20110307
  Receipt Date: 20110224
  Transmission Date: 20110831
  Serious: Yes (Hospitalization, Other)
  Sender: FDA-Public Use
  Company Number: US-ELI_LILLY_AND_COMPANY-US201102007243

PATIENT
  Sex: Female

DRUGS (4)
  1. FORTEO [Suspect]
     Indication: OSTEOPOROSIS
     Dosage: 20 UG, DAILY (1/D)
     Dates: start: 20100901
  2. FORTEO [Suspect]
     Dosage: 20 UG, DAILY (1/D)
     Dates: end: 20110101
  3. PLAVIX [Concomitant]
     Indication: STENT PLACEMENT
  4. ANTIHYPERTENSIVES [Concomitant]

REACTIONS (2)
  - INTESTINAL OBSTRUCTION [None]
  - ABDOMINAL ADHESIONS [None]
